FAERS Safety Report 17388270 (Version 3)
Quarter: 2020Q3

REPORT INFORMATION
  Report Type: Spontaneous
  Country: US (occurrence: US)
  Receive Date: 20200206
  Receipt Date: 20200707
  Transmission Date: 20201102
  Serious: No
  Sender: FDA-Public Use
  Company Number: US-ACTELION-A-US2020-201154

PATIENT
  Age: 35 Year
  Sex: Female
  Weight: 76.19 kg

DRUGS (4)
  1. REVATIO [Concomitant]
     Active Substance: SILDENAFIL CITRATE
  2. UPTRAVI [Suspect]
     Active Substance: SELEXIPAG
     Indication: PULMONARY ARTERIAL HYPERTENSION
     Dosage: 1400 MCG, BID
     Route: 048
  3. UPTRAVI [Suspect]
     Active Substance: SELEXIPAG
     Dosage: 200 MCG, BID
     Route: 048
     Dates: start: 202001
  4. OPSUMIT [Suspect]
     Active Substance: MACITENTAN
     Indication: PULMONARY ARTERIAL HYPERTENSION
     Dosage: 10 MG, QD
     Route: 048
     Dates: start: 20151023

REACTIONS (9)
  - Facial pain [Not Recovered/Not Resolved]
  - Eye pain [Unknown]
  - Nausea [Unknown]
  - Pain in jaw [Not Recovered/Not Resolved]
  - Myalgia [Not Recovered/Not Resolved]
  - Abdominal discomfort [Unknown]
  - Headache [Not Recovered/Not Resolved]
  - Arthralgia [Not Recovered/Not Resolved]
  - Diarrhoea [Not Recovered/Not Resolved]

NARRATIVE: CASE EVENT DATE: 202001
